FAERS Safety Report 9670805 (Version 1)
Quarter: 2013Q4

REPORT INFORMATION
  Report Type: Spontaneous
  Country: US (occurrence: None)
  Receive Date: 20131105
  Receipt Date: 20131105
  Transmission Date: 20140711
  Serious: Yes (Hospitalization)
  Sender: FDA-Public Use
  Company Number: None

PATIENT
  Age: 77 Year
  Sex: Female
  Weight: 60.8 kg

DRUGS (2)
  1. ATENOLOL [Suspect]
     Indication: BLOOD PRESSURE ABNORMAL
     Dates: start: 20110916, end: 20110920
  2. METOPROLOL [Suspect]

REACTIONS (3)
  - Atrial fibrillation [None]
  - Electrocardiogram QT prolonged [None]
  - Medication error [None]
